APPROVED DRUG PRODUCT: TRIAZOLAM
Active Ingredient: TRIAZOLAM
Strength: 0.125MG
Dosage Form/Route: TABLET;ORAL
Application: A074445 | Product #001
Applicant: WATSON LABORATORIES INC
Approved: Oct 20, 1995 | RLD: No | RS: No | Type: DISCN